FAERS Safety Report 9822839 (Version 2)
Quarter: 2014Q1

REPORT INFORMATION
  Report Type: Spontaneous
  Country: DE (occurrence: DE)
  Receive Date: 20140116
  Receipt Date: 20140305
  Transmission Date: 20141002
  Serious: Yes (Life-Threatening, Hospitalization, Other)
  Sender: FDA-Public Use
  Company Number: DE-ELI_LILLY_AND_COMPANY-DE201401003270

PATIENT
  Sex: Female

DRUGS (4)
  1. HUMALOG LISPRO [Suspect]
     Indication: TYPE 1 DIABETES MELLITUS
     Dosage: UNK UNK, UNKNOWN
     Route: 058
     Dates: start: 2000
  2. HUMALOG LISPRO [Suspect]
     Dosage: UNK, UNKNOWN
     Route: 058
     Dates: start: 2005, end: 2008
  3. HUMALOG LISPRO [Suspect]
     Dosage: UNK
     Route: 058
     Dates: start: 2008, end: 20140107
  4. L-THYROXINE                        /00068001/ [Concomitant]
     Dosage: UNK, OTHER

REACTIONS (4)
  - Diabetic ketoacidosis [Recovered/Resolved]
  - Thyroid cancer [Unknown]
  - Drug ineffective [Recovered/Resolved]
  - Glycosylated haemoglobin increased [Unknown]
